FAERS Safety Report 10155198 (Version 2)
Quarter: 2014Q2

REPORT INFORMATION
  Report Type: Spontaneous
  Country: US (occurrence: US)
  Receive Date: 20140506
  Receipt Date: 20140506
  Transmission Date: 20141212
  Serious: Yes (Other)
  Sender: FDA-Public Use
  Company Number: PHEH2014US007045

PATIENT
  Age: 67 Year
  Sex: Female
  Weight: 85.2 kg

DRUGS (14)
  1. RECLAST [Suspect]
     Indication: OSTEOPOROSIS
     Dosage: 5MG/100ML
     Route: 042
     Dates: start: 20140407, end: 20140407
  2. VITAMIN D [Concomitant]
     Dosage: UNK UKN, QD
     Route: 048
  3. CALCIUM [Concomitant]
     Dosage: UNK UKN, UNK
  4. POTASSIUM [Concomitant]
     Dosage: UNK UKN, UNK
  5. MAGNESIUM [Concomitant]
     Dosage: UNK UKN, UNK
  6. B12-VITAMIIN [Concomitant]
     Dosage: UNK UKN, UNK
  7. VITAMIN B [Concomitant]
     Dosage: UNK UKN, UNK
  8. NIACIN [Concomitant]
     Dosage: UNK UKN, UNK
  9. LISINOPRIL [Concomitant]
     Indication: HYPERTENSION
     Dosage: 20 MG, UNK
     Route: 048
  10. TOPIRAMAX [Concomitant]
     Dosage: UNK UKN, UNK
  11. FOLIC ACID [Concomitant]
     Dosage: UNK UKN, UNK
  12. LEVOTHYROXINE [Concomitant]
     Indication: HYPOTHYROIDISM
     Dosage: 100 MG, UNK
     Route: 048
  13. PROPRANOL [Concomitant]
     Indication: HYPERTENSION
     Dosage: 0.625 MG, UNK
  14. BENTYL [Concomitant]
     Indication: IRRITABLE BOWEL SYNDROME
     Dosage: 10 MG, BID
     Route: 048

REACTIONS (3)
  - Neuralgia [Recovered/Resolved]
  - Skin burning sensation [Unknown]
  - Pain [Unknown]
